FAERS Safety Report 10047153 (Version 2)
Quarter: 2014Q1

REPORT INFORMATION
  Report Type: Spontaneous
  Country: US (occurrence: US)
  Receive Date: 20140331
  Receipt Date: 20140331
  Transmission Date: 20141002
  Serious: No
  Sender: FDA-Public Use
  Company Number: US-MYLANLABS-2013S1012897

PATIENT
  Age: 72 Year
  Sex: Female
  Weight: 90.72 kg

DRUGS (3)
  1. FENTANYL TRANSDERMAL SYSTEM [Suspect]
     Indication: SPINAL PAIN
     Dosage: CHANGED EVERY 48 - 72 HOURS.
     Route: 062
  2. LIPITOR [Concomitant]
     Indication: BLOOD CHOLESTEROL INCREASED
     Route: 048
     Dates: start: 2012
  3. DOXEPIN [Concomitant]
     Indication: PAIN
     Dosage: PATIENT DOES NOT CONSIDER THIS MEDICATION TO BE SUSPECT TO EVENTS.
     Route: 048

REACTIONS (3)
  - Drug withdrawal syndrome [Recovered/Resolved]
  - Withdrawal arrhythmia [Recovered/Resolved]
  - Pain in extremity [Recovered/Resolved]
